FAERS Safety Report 9077075 (Version 1)
Quarter: 2013Q1

REPORT INFORMATION
  Report Type: Report from Study
  Country: US (occurrence: US)
  Receive Date: 20130129
  Receipt Date: 20130129
  Transmission Date: 20140127
  Serious: No
  Sender: FDA-Public Use
  Company Number: US-ABBOTT-12P-163-0948317-00

PATIENT
  Sex: Female
  Weight: 69.01 kg

DRUGS (2)
  1. HUMIRA 40 MG/0.8 ML PEN [Suspect]
     Indication: CROHN^S DISEASE
     Route: 058
     Dates: start: 20120531, end: 20120531
  2. HUMIRA 40 MG/0.8 ML PEN [Suspect]
     Dates: start: 20120614, end: 20120614

REACTIONS (8)
  - Gastric dilatation [Unknown]
  - Intestinal dilatation [Unknown]
  - Nausea [Unknown]
  - Lip swelling [Unknown]
  - Eye swelling [Unknown]
  - Ocular hyperaemia [Unknown]
  - Feeling hot [Unknown]
  - Hyperhidrosis [Unknown]
